FAERS Safety Report 24807846 (Version 2)
Quarter: 2025Q1

REPORT INFORMATION
  Report Type: Report from Study
  Country: US (occurrence: US)
  Receive Date: 20250106
  Receipt Date: 20250115
  Transmission Date: 20250408
  Serious: No
  Sender: ROCHE
  Company Number: US-ROCHE-10000170407

PATIENT
  Age: 52 Year
  Sex: Female
  Weight: 92.99 kg

DRUGS (4)
  1. OCREVUS [Suspect]
     Active Substance: OCRELIZUMAB
     Indication: Multiple sclerosis
     Dosage: LAST DOSE TAKEN ON 30-JUN-2024. TOTAL DOSE 60000 MG. EVERY 6 MONTHS/INFUSE 600 MG IN 500 ML OF 0.9%
     Route: 042
     Dates: start: 2020
  2. DULOXETINE [Concomitant]
     Active Substance: DULOXETINE
  3. CYMBALTA [Concomitant]
     Active Substance: DULOXETINE HYDROCHLORIDE
  4. LANSOPRAZOLE [Concomitant]
     Active Substance: LANSOPRAZOLE

REACTIONS (3)
  - Drug ineffective [Unknown]
  - COVID-19 [Unknown]
  - Multiple sclerosis [Unknown]
